FAERS Safety Report 9238393 (Version 3)
Quarter: 2013Q2

REPORT INFORMATION
  Report Type: Spontaneous
  Country: GB (occurrence: GB)
  Receive Date: 20130418
  Receipt Date: 20130606
  Transmission Date: 20140414
  Serious: Yes (Other)
  Sender: FDA-Public Use
  Company Number: GB-ELI_LILLY_AND_COMPANY-GB201304003244

PATIENT
  Sex: Female

DRUGS (2)
  1. HUMULIN 30% REGULAR, 70% NPH [Suspect]
     Indication: DIABETES MELLITUS
     Dosage: UNK UNK, UNKNOWN
     Dates: start: 2011
  2. WARFARIN [Concomitant]

REACTIONS (6)
  - Thrombotic stroke [Unknown]
  - Haemorrhagic stroke [Unknown]
  - Memory impairment [Unknown]
  - Cataract [Not Recovered/Not Resolved]
  - Visual acuity reduced [Unknown]
  - Blood glucose decreased [Recovered/Resolved]
